FAERS Safety Report 7921947-5 (Version None)
Quarter: 2011Q4

REPORT INFORMATION
  Report Type: 
  Country: None (occurrence: None)
  Receive Date: 20111117
  Receipt Date: 20111114
  Transmission Date: 20120403
  Serious: Yes (Other)
  Sender: FDA-Public Use
  Company Number: JP-ABBOTT-11P-087-0871784-00

PATIENT
  Sex: Male
  Weight: 72.5 kg

DRUGS (6)
  1. MESALAMINE [Concomitant]
     Indication: CROHN'S DISEASE
     Route: 048
  2. BEZAFIBRATE [Concomitant]
     Indication: HYPERLIPIDAEMIA
     Route: 048
  3. SALMETEROL XINAFOATE/FLUTICASONE PROPIONATE [Concomitant]
     Indication: ASTHMA
     Dosage: 250MICROGRAM; 1 IN 1 DAY
     Route: 055
  4. HUMIRA [Suspect]
     Dates: end: 20111101
  5. HUMIRA [Suspect]
     Indication: CROHN'S DISEASE
     Route: 058
     Dates: start: 20101116
  6. HUMIRA [Suspect]

REACTIONS (2)
  - GAIT DISTURBANCE [None]
  - INTERVERTEBRAL DISC PROTRUSION [None]
